FAERS Safety Report 24155261 (Version 1)
Quarter: 2024Q3

REPORT INFORMATION
  Report Type: Spontaneous
  Country: US (occurrence: US)
  Receive Date: 20240731
  Receipt Date: 20240731
  Transmission Date: 20241016
  Serious: No
  Sender: ELI LILLY AND CO
  Company Number: US-ELI_LILLY_AND_COMPANY-US202407019498

PATIENT
  Age: 75 Year
  Sex: Female

DRUGS (1)
  1. VERZENIO [Suspect]
     Active Substance: ABEMACICLIB
     Indication: Rectal abscess
     Dosage: 50 MG, BID
     Route: 048

REACTIONS (3)
  - Product dose omission issue [Unknown]
  - Off label use [Unknown]
  - Asthenia [Unknown]

NARRATIVE: CASE EVENT DATE: 20240701
